FAERS Safety Report 17807498 (Version 2)
Quarter: 2020Q4

REPORT INFORMATION
  Report Type: Spontaneous
  Country: US (occurrence: US)
  Receive Date: 20200520
  Receipt Date: 20201005
  Transmission Date: 20210113
  Serious: Yes (Other)
  Sender: FDA-Public Use
  Company Number: US-GLAXOSMITHKLINE-US2020AMR083819

PATIENT
  Age: 22 Year
  Sex: Female
  Weight: 131 kg

DRUGS (6)
  1. CLONAZEPAM. [Suspect]
     Active Substance: CLONAZEPAM
     Indication: PRODUCT USED FOR UNKNOWN INDICATION
     Dosage: UNK
  2. TOPIRAMATE. [Concomitant]
     Active Substance: TOPIRAMATE
     Indication: PRODUCT USED FOR UNKNOWN INDICATION
     Dosage: UNK
  3. LAMICTAL XR [Suspect]
     Active Substance: LAMOTRIGINE
     Dosage: 600 MG, BID
     Route: 065
  4. LAMICTAL XR [Suspect]
     Active Substance: LAMOTRIGINE
     Dosage: 300 MG, QD
     Route: 065
  5. ETHOSUXIMID [Concomitant]
     Indication: PRODUCT USED FOR UNKNOWN INDICATION
     Dosage: UNK
  6. LAMICTAL XR [Suspect]
     Active Substance: LAMOTRIGINE
     Indication: EPILEPSY
     Dosage: 300 MG, BID
     Route: 065
     Dates: start: 2012

REACTIONS (3)
  - Memory impairment [Unknown]
  - Generalised tonic-clonic seizure [Not Recovered/Not Resolved]
  - Insomnia [Recovering/Resolving]

NARRATIVE: CASE EVENT DATE: 20200420
